FAERS Safety Report 5477420-X (Version None)
Quarter: 2007Q4

REPORT INFORMATION
  Report Type: 
  Country: None (occurrence: None)
  Receive Date: 20071004
  Receipt Date: 20070925
  Transmission Date: 20080405
  Serious: Yes (Other)
  Sender: FDA-Public Use
  Company Number: BR-ABBOTT-07P-020-0418655-00

PATIENT
  Sex: Female
  Weight: 58 kg

DRUGS (3)
  1. HUMIRA [Suspect]
     Indication: RHEUMATOID ARTHRITIS
     Route: 058
     Dates: end: 20070831
  2. METHOTREXATE [Concomitant]
     Indication: RHEUMATOID ARTHRITIS
     Route: 048
     Dates: start: 19970101
  3. UNKNOWN MAGISTRAL FORMULA [Concomitant]
     Indication: ARTHRALGIA
     Route: 048
     Dates: start: 20050101

REACTIONS (6)
  - BLOOD PRESSURE INCREASED [None]
  - COUGH [None]
  - DYSPNOEA [None]
  - FATIGUE [None]
  - PNEUMONIA [None]
  - WEIGHT DECREASED [None]
